FAERS Safety Report 19275620 (Version 1)
Quarter: 2021Q2

REPORT INFORMATION
  Report Type: Spontaneous
  Country: FR (occurrence: FR)
  Receive Date: 20210519
  Receipt Date: 20210519
  Transmission Date: 20210717
  Serious: Yes (Other)
  Sender: FDA-Public Use
  Company Number: FR-ELI_LILLY_AND_COMPANY-FR202105007055

PATIENT
  Sex: Female

DRUGS (1)
  1. EMGALITY [Suspect]
     Active Substance: GALCANEZUMAB-GNLM
     Indication: PRODUCT USED FOR UNKNOWN INDICATION
     Dosage: 240 MG, SINGLE (ONE MONTH)
     Route: 065

REACTIONS (5)
  - Anxiety [Unknown]
  - Dyspnoea [Unknown]
  - Panic attack [Unknown]
  - Suicidal ideation [Unknown]
  - Insomnia [Unknown]
